FAERS Safety Report 11228344 (Version 1)
Quarter: 2015Q2

REPORT INFORMATION
  Report Type: Report from Study
  Country: JP (occurrence: JP)
  Receive Date: 20150630
  Receipt Date: 20150630
  Transmission Date: 20150821
  Serious: Yes (Life-Threatening, Other)
  Sender: FDA-Public Use
  Company Number: JP-OTSUKA-2015_004214

PATIENT

DRUGS (15)
  1. TOLVAPTAN [Suspect]
     Active Substance: TOLVAPTAN
     Indication: OEDEMA DUE TO HEPATIC DISEASE
     Dosage: 7.5 MG, QD
     Route: 048
     Dates: start: 20150420, end: 20150429
  2. VASOLAN [Concomitant]
     Active Substance: VERAPAMIL HYDROCHLORIDE
     Indication: PRODUCT USED FOR UNKNOWN INDICATION
     Dosage: 5 MG/DAY
     Route: 042
     Dates: start: 20150425, end: 20150425
  3. VASOLAN [Concomitant]
     Active Substance: VERAPAMIL HYDROCHLORIDE
     Dosage: 5 MG/DAY
     Route: 042
     Dates: start: 20150428, end: 20150428
  4. SPIRONOLACTONE. [Concomitant]
     Active Substance: SPIRONOLACTONE
     Indication: FLUID RETENTION
     Dosage: 50 MG/DAY
     Route: 048
     Dates: end: 20150429
  5. BISOPUROLOL [Concomitant]
     Indication: PRODUCT USED FOR UNKNOWN INDICATION
     Dosage: 4 MG/DAY
     Route: 061
     Dates: start: 20150425
  6. LIVACT [Concomitant]
     Active Substance: AMINO ACIDS
     Indication: FLUID RETENTION
     Dosage: 2 DF/DAY
     Route: 048
     Dates: end: 20150429
  7. RHYTHMY [Concomitant]
     Active Substance: RILMAZAFONE HYDROCHLORIDE
     Indication: INSOMNIA
     Dosage: 1 MG/DAY
     Route: 048
     Dates: end: 20150429
  8. SOLDACTONE [Concomitant]
     Active Substance: CANRENOATE POTASSIUM
     Indication: PRODUCT USED FOR UNKNOWN INDICATION
     Dosage: 400 MG/DAY
     Route: 042
     Dates: end: 20150419
  9. PIMOBENDAN [Concomitant]
     Active Substance: PIMOBENDAN
     Indication: PRODUCT USED FOR UNKNOWN INDICATION
     Dosage: 5 MG/DAY
     Route: 048
     Dates: start: 20150425, end: 20150429
  10. LASIX M [Concomitant]
     Active Substance: FUROSEMIDE
     Indication: FLUID RETENTION
     Dosage: 20 MG/DAY
     Route: 048
     Dates: start: 20150425, end: 20150429
  11. RYTHMODAN P [Concomitant]
     Indication: PRODUCT USED FOR UNKNOWN INDICATION
     Dosage: 50 MG/DAY
     Route: 042
     Dates: start: 20150428, end: 20150428
  12. DESLANOSIDE [Concomitant]
     Active Substance: DESLANOSIDE
     Indication: FLUID RETENTION
     Dosage: 0.4 MG/DAY
     Route: 042
     Dates: end: 20150419
  13. DESLANOSIDE [Concomitant]
     Active Substance: DESLANOSIDE
     Dosage: 0.4 MG/DAY
     Route: 042
     Dates: start: 20150425, end: 20150425
  14. LANIRAPID [Concomitant]
     Active Substance: METILDIGOXIN
     Indication: PRODUCT USED FOR UNKNOWN INDICATION
     Dosage: 0.05 MG/DAY
     Route: 048
     Dates: start: 20150428, end: 20150429
  15. RYTHMODAN [Concomitant]
     Active Substance: DISOPYRAMIDE
     Indication: PRODUCT USED FOR UNKNOWN INDICATION
     Dosage: 300 MG/DAY
     Route: 048
     Dates: start: 20150428, end: 20150429

REACTIONS (3)
  - Supraventricular tachycardia [Recovered/Resolved]
  - Supraventricular tachycardia [Recovered/Resolved]
  - Hepatic encephalopathy [Recovering/Resolving]

NARRATIVE: CASE EVENT DATE: 20150425
